FAERS Safety Report 15922426 (Version 1)
Quarter: 2019Q1

REPORT INFORMATION
  Report Type: Spontaneous
  Country: US (occurrence: US)
  Receive Date: 20190115
  Receipt Date: 20190115
  Transmission Date: 20190417
  Serious: Yes (Hospitalization)
  Sender: FDA-Public Use
  Company Number: None

PATIENT
  Age: 54 Year
  Sex: Female

DRUGS (13)
  1. AMLODIPINE [Concomitant]
     Active Substance: AMLODIPINE BESYLATE
  2. ALPRAZOLAM. [Concomitant]
     Active Substance: ALPRAZOLAM
  3. TYKERB [Concomitant]
     Active Substance: LAPATINIB DITOSYLATE
  4. ATENOLOL. [Concomitant]
     Active Substance: ATENOLOL
  5. CAPECITABINE 500 MG [Suspect]
     Active Substance: CAPECITABINE
     Dosage: ?          OTHER FREQUENCY:QDPM;?
  6. CLINDAMYCIN. [Concomitant]
     Active Substance: CLINDAMYCIN
  7. CAPECITABINE 500 MG [Suspect]
     Active Substance: CAPECITABINE
     Indication: NEOPLASM MALIGNANT
     Dosage: OTHER FREQUENCY:QDAM; 1500MG/1000MG?
     Dates: start: 20181011
  8. QUETIAPINE. [Suspect]
     Active Substance: QUETIAPINE
  9. POTASSIUM [Concomitant]
     Active Substance: POTASSIUM
  10. LORAZEPAM. [Concomitant]
     Active Substance: LORAZEPAM
  11. DIPHENHYDRAMINE. [Concomitant]
     Active Substance: DIPHENHYDRAMINE
  12. FUROSEMIDE. [Concomitant]
     Active Substance: FUROSEMIDE
  13. ACETAMINOPHEN. [Concomitant]
     Active Substance: ACETAMINOPHEN

REACTIONS (2)
  - Hypoaesthesia [None]
  - Diarrhoea [None]
